FAERS Safety Report 24730474 (Version 1)
Quarter: 2024Q4

REPORT INFORMATION
  Report Type: Spontaneous
  Country: US (occurrence: US)
  Receive Date: 20241213
  Receipt Date: 20241213
  Transmission Date: 20250115
  Serious: Yes (Hospitalization)
  Sender: APOTEX
  Company Number: US-APOTEX-2024AP019563

PATIENT
  Age: 2 Year
  Sex: Male

DRUGS (1)
  1. DASATINIB [Suspect]
     Active Substance: DASATINIB
     Indication: B-cell type acute leukaemia
     Dosage: 40 MILLIGRAM, QD
     Route: 065

REACTIONS (2)
  - Hypoglycaemia [Recovering/Resolving]
  - Hyperinsulinism [Recovering/Resolving]
